FAERS Safety Report 6185957-3 (Version None)
Quarter: 2009Q2

REPORT INFORMATION
  Report Type: 
  Country: None (occurrence: None)
  Receive Date: 20090511
  Receipt Date: 20090504
  Transmission Date: 20091009
  Serious: Yes (Hospitalization, Other)
  Sender: FDA-Public Use
  Company Number: US-ELI_LILLY_AND_COMPANY-US200905000395

PATIENT
  Sex: Female
  Weight: 80.726 kg

DRUGS (7)
  1. BYETTA [Suspect]
     Indication: TYPE 2 DIABETES MELLITUS
     Dosage: 5 UG, 2/D
     Route: 058
     Dates: start: 20060101, end: 20060101
  2. BYETTA [Suspect]
     Dosage: 10 UG, 2/D
     Route: 058
     Dates: start: 20060101, end: 20080701
  3. BYETTA [Suspect]
     Dosage: 5 UG, UNK
     Route: 058
     Dates: start: 20090205, end: 20090401
  4. BYETTA [Suspect]
     Dosage: 10 UG, 2/D
     Route: 058
     Dates: start: 20090401
  5. METFORMIN HCL [Concomitant]
     Dosage: 500 MG, DAILY (1/D)
  6. LEVEMIR [Concomitant]
     Dosage: 18 U, EACH EVENING
     Dates: start: 20060101
  7. SIMVASTATIN [Concomitant]
     Dosage: 40 MG, DAILY (1/D)

REACTIONS (5)
  - CATARACT OPERATION [None]
  - FOOT FRACTURE [None]
  - MYOCARDIAL INFARCTION [None]
  - NAUSEA [None]
  - SKIN DISCOLOURATION [None]
